FAERS Safety Report 24127021 (Version 2)
Quarter: 2025Q3

REPORT INFORMATION
  Report Type: Report from Study
  Country: US (occurrence: US)
  Receive Date: 20240723
  Receipt Date: 20250722
  Transmission Date: 20251020
  Serious: No
  Sender: VANDA PHARMACEUTICALS
  Company Number: US-VANDA PHARMACEUTICALS, INC-2024TASUS007274

PATIENT
  Sex: Female

DRUGS (2)
  1. HETLIOZ [Suspect]
     Active Substance: TASIMELTEON
     Indication: Non-24-hour sleep-wake disorder
     Dosage: 20 MILLIGRAM, QD
     Route: 048
     Dates: start: 20240217
  2. BENADRYL [Concomitant]
     Active Substance: DIPHENHYDRAMINE HYDROCHLORIDE
     Indication: Product used for unknown indication
     Dates: start: 20240217

REACTIONS (3)
  - Middle insomnia [Unknown]
  - Initial insomnia [Not Recovered/Not Resolved]
  - Therapeutic product effect incomplete [Unknown]
